FAERS Safety Report 6051716-5 (Version None)
Quarter: 2009Q1

REPORT INFORMATION
  Report Type: 
  Country: None (occurrence: None)
  Receive Date: 20090126
  Receipt Date: 20090113
  Transmission Date: 20090719
  Serious: Yes (Hospitalization, Other)
  Sender: FDA-Public Use
  Company Number: US-ROCHE-597692

PATIENT
  Sex: Female
  Weight: 51.7 kg

DRUGS (4)
  1. CAPECITABINE [Suspect]
     Indication: COLORECTAL CANCER
     Dosage: DOSE: 500 MG 3 DOSE FORM DAILY, 1000 MG AM, 500 MG PM
     Route: 048
     Dates: start: 20080903
  2. DILAUDID [Concomitant]
     Indication: PAIN
     Dosage: AS NEEDED
     Route: 048
  3. FEOSOL [Concomitant]
     Route: 048
  4. METHIMAZOLE [Concomitant]
     Indication: THYROID DISORDER
     Route: 048

REACTIONS (4)
  - COLON CANCER METASTATIC [None]
  - DIARRHOEA [None]
  - PLEURAL EFFUSION [None]
  - PNEUMONIA [None]
